FAERS Safety Report 25089796 (Version 1)
Quarter: 2025Q1

REPORT INFORMATION
  Report Type: Spontaneous
  Country: KR (occurrence: KR)
  Receive Date: 20250318
  Receipt Date: 20250318
  Transmission Date: 20250409
  Serious: Yes (Other)
  Sender: ROCHE
  Company Number: KR-ROCHE-10000231645

PATIENT
  Age: 34 Year
  Sex: Female

DRUGS (7)
  1. HERCEPTIN [Suspect]
     Active Substance: TRASTUZUMAB
     Indication: Breast cancer metastatic
     Route: 065
     Dates: start: 20170710, end: 20171108
  2. ADO-TRASTUZUMAB EMTANSINE [Suspect]
     Active Substance: ADO-TRASTUZUMAB EMTANSINE
     Indication: Breast cancer metastatic
     Route: 065
     Dates: start: 20180103, end: 20180220
  3. DOCETAXEL [Suspect]
     Active Substance: DOCETAXEL
     Indication: Breast cancer metastatic
     Route: 065
     Dates: start: 20171116, end: 20171218
  4. MARGETUXIMAB [Concomitant]
     Active Substance: MARGETUXIMAB
     Dates: start: 20180403, end: 20200403
  5. ERIBULIN [Concomitant]
     Active Substance: ERIBULIN
     Dates: start: 20180403, end: 20180909
  6. VORICONAZOLE [Concomitant]
     Active Substance: VORICONAZOLE
     Dates: end: 20200724
  7. ITRACONAZOLE [Concomitant]
     Active Substance: ITRACONAZOLE
     Dates: start: 20190930

REACTIONS (1)
  - Metastases to lung [Unknown]
